FAERS Safety Report 7721626-3 (Version None)
Quarter: 2011Q3

REPORT INFORMATION
  Report Type: 
  Country: None (occurrence: None)
  Receive Date: 20110831
  Receipt Date: 20080904
  Transmission Date: 20111222
  Serious: Yes (Hospitalization)
  Sender: FDA-Public Use
  Company Number: US-GLAXOSMITHKLINE-A0746672A

PATIENT
  Age: 75 Year
  Sex: Male
  Weight: 77.3 kg

DRUGS (5)
  1. AVANDIA [Suspect]
     Indication: TYPE 2 DIABETES MELLITUS
     Dosage: 4MG TWICE PER DAY
     Route: 048
     Dates: start: 20000101, end: 20070101
  2. LIPITOR [Concomitant]
  3. DIURIL [Concomitant]
  4. HUMALOG [Concomitant]
  5. GLARGINE [Concomitant]

REACTIONS (4)
  - ANGINA UNSTABLE [None]
  - CORONARY ARTERY DISEASE [None]
  - CHEST PAIN [None]
  - OEDEMA [None]
